FAERS Safety Report 4332490-7 (Version None)
Quarter: 2004Q2

REPORT INFORMATION
  Report Type: 
  Country: None (occurrence: None)
  Receive Date: 20040401
  Receipt Date: 20040324
  Transmission Date: 20050107
  Serious: Yes (Hospitalization)
  Sender: FDA-Public Use
  Company Number: JP-JNJFOC-20040300343

PATIENT
  Age: 76 Year
  Sex: Male

DRUGS (6)
  1. OFLOXACIN [Suspect]
     Indication: DRUG USE FOR UNKNOWN INDICATION
     Dosage: 400 MG, ORAL
     Route: 048
     Dates: start: 20040104, end: 20040109
  2. OROKEN (CEFIXIME) TABLETS [Suspect]
     Indication: DRUG USE FOR UNKNOWN INDICATION
     Dosage: 2 IU, ORAL
     Route: 048
     Dates: start: 20040104, end: 20040109
  3. DAFLON (DIOSMIN) TABLETS [Suspect]
     Indication: DRUG USE FOR UNKNOWN INDICATION
     Dosage: 1 IU, ORAL
     Route: 048
     Dates: end: 20040112
  4. LIPANTHYL (FENOFIBRATE) TABLETS [Suspect]
     Indication: DRUG USE FOR UNKNOWN INDICATION
     Dosage: 160 MG, ORAL
     Route: 048
     Dates: end: 20040112
  5. ACETAMINOPHEN [Suspect]
     Indication: DRUG USE FOR UNKNOWN INDICATION
     Dosage: ORAL
     Route: 048
     Dates: end: 20040112
  6. LOVENOX [Concomitant]

REACTIONS (5)
  - DIARRHOEA [None]
  - HEPATOCELLULAR DAMAGE [None]
  - LEUKOPENIA [None]
  - NEUTROPENIA [None]
  - STREPTOCOCCAL BACTERAEMIA [None]
